FAERS Safety Report 4498872-8 (Version None)
Quarter: 2004Q4

REPORT INFORMATION
  Report Type: 
  Country: None (occurrence: None)
  Receive Date: 20041108
  Receipt Date: 20041020
  Transmission Date: 20050328
  Serious: Yes (Life-Threatening, Hospitalization)
  Sender: FDA-Public Use
  Company Number: 6011208

PATIENT
  Age: 65 Year
  Sex: Male

DRUGS (14)
  1. EUTHYROX 100 (TABLETS) (LEVOTHYROXINE SODIUM) [Suspect]
     Indication: HYPOTHYROIDISM
     Dosage: 100,0000 MG (100 MG, 1 IN 1 D)
     Route: 048
     Dates: start: 19990101
  2. FALITHROM (TABLETS) (PHENPROCOUMON) [Suspect]
     Indication: AORTIC BYPASS
     Dosage: 1,500 MG (1,5 MG, 1 IN 1 D)
     Route: 048
     Dates: start: 20040601
  3. FALITHROM (TABLETS) (PHENPROCOUMON) [Suspect]
     Indication: ATRIAL FIBRILLATION
     Dosage: 1,500 MG (1,5 MG, 1 IN 1 D)
     Route: 048
     Dates: start: 20040601
  4. PANTOZOL (TABLETS) (PANTOPRAZOLE SODIUM) [Suspect]
     Dosage: 40,000 MG (40 MG, 1 IN 1 D)
     Route: 048
     Dates: start: 20040601
  5. RAPAMUNE [Suspect]
     Dosage: (1,5 MG, 1- 0 - 0.5)
     Route: 048
     Dates: start: 20040301
  6. URBASON (TABLETS) (METHYLPREDNISOLONE) [Suspect]
     Indication: IMMUNOSUPPRESSION
     Dosage: 8,00 MG (8 MG, 1 IN 1 D)
     Route: 048
     Dates: start: 20040301
  7. BAYOTENSIN (NITRENDIPINE) [Concomitant]
  8. BELOC-ZOK MITE (METOPROLOL SUCCINATE) [Concomitant]
  9. CELLCEPT [Concomitant]
  10. DIGITOXIN TAB [Concomitant]
  11. RENACOR (HYDROCHLOROTHIAZIDE, ENALAPRIL MALEATE) [Concomitant]
  12. ROCALTROL [Concomitant]
  13. TOREM (TORASEMIDE) [Concomitant]
  14. TRAMADOL HCL [Concomitant]

REACTIONS (3)
  - DIALYSIS [None]
  - DRUG INTERACTION [None]
  - EPISTAXIS [None]
